FAERS Safety Report 12256972 (Version 1)
Quarter: 2016Q2

REPORT INFORMATION
  Report Type: Spontaneous
  Country: US (occurrence: None)
  Receive Date: 20160411
  Receipt Date: 20160411
  Transmission Date: 20160815
  Serious: Yes (Other)
  Sender: FDA-Public Use
  Company Number: None

PATIENT
  Age: 68 Year
  Sex: Male
  Weight: 106.6 kg

DRUGS (7)
  1. FENOFIBRATE. [Concomitant]
     Active Substance: FENOFIBRATE
  2. JANUMET [Concomitant]
     Active Substance: METFORMIN HYDROCHLORIDE\SITAGLIPTIN PHOSPHATE
  3. PRAVASTATIN [Concomitant]
     Active Substance: PRAVASTATIN\PRAVASTATIN SODIUM
  4. METOPROLOL SUCC TB 200MG ER, 200 MG DR REDDYS [Suspect]
     Active Substance: METOPROLOL SUCCINATE
     Indication: HYPERTENSION
     Route: 048
     Dates: start: 20160225
  5. LINSINOPROL SYNTHROID [Concomitant]
  6. COQ10 [Concomitant]
     Active Substance: UBIDECARENONE
  7. TRAVANTAN [Concomitant]

REACTIONS (2)
  - Drug effect decreased [None]
  - Blood pressure increased [None]

NARRATIVE: CASE EVENT DATE: 20160408
